FAERS Safety Report 20233518 (Version 2)
Quarter: 2022Q3

REPORT INFORMATION
  Report Type: Spontaneous
  Country: US (occurrence: US)
  Receive Date: 20211227
  Receipt Date: 20220701
  Transmission Date: 20221027
  Serious: No
  Sender: FDA-Public Use
  Company Number: US-BRISTOL-MYERS SQUIBB COMPANY-BMS-2021-141101

PATIENT
  Sex: Female

DRUGS (2)
  1. OPDIVO [Suspect]
     Active Substance: NIVOLUMAB
     Indication: Mesothelioma
     Dosage: UNK UNK, Q3WK
     Route: 042
     Dates: start: 2021
  2. YERVOY [Suspect]
     Active Substance: IPILIMUMAB
     Indication: Mesothelioma
     Dosage: UNK UNK, Q3WK
     Route: 042
     Dates: start: 2021

REACTIONS (3)
  - Abdominal pain upper [Unknown]
  - Pruritus [Unknown]
  - Arthralgia [Unknown]
